FAERS Safety Report 7231856-5 (Version None)
Quarter: 2011Q1

REPORT INFORMATION
  Report Type: 
  Country: None (occurrence: None)
  Receive Date: 20110118
  Receipt Date: 20110107
  Transmission Date: 20110831
  Serious: Yes (Other)
  Sender: FDA-Public Use
  Company Number: SE-PFIZER INC-2011004490

PATIENT
  Age: 37 Year
  Sex: Female

DRUGS (3)
  1. IPREN [Suspect]
     Indication: HEADACHE
     Dosage: 8000 MG, 1X/DAY
     Route: 048
  2. IPREN [Suspect]
     Indication: NECK PAIN
  3. IPREN [Suspect]
     Indication: DYSMENORRHOEA

REACTIONS (2)
  - DEPENDENCE [None]
  - INTENTIONAL OVERDOSE [None]
